FAERS Safety Report 7746438-6 (Version None)
Quarter: 2011Q3

REPORT INFORMATION
  Report Type: 
  Country: None (occurrence: None)
  Receive Date: 20110913
  Receipt Date: 20110905
  Transmission Date: 20111222
  Serious: Yes (Life-Threatening)
  Sender: FDA-Public Use
  Company Number: PL-BAXTER-2011BH028782

PATIENT
  Age: 15 Year
  Sex: Female
  Weight: 55 kg

DRUGS (5)
  1. KETOPROFEN [Concomitant]
     Indication: PRODUCT USED FOR UNKNOWN INDICATION
     Route: 065
  2. ENOXAPARIN SODIUM [Concomitant]
     Indication: PRODUCT USED FOR UNKNOWN INDICATION
     Route: 065
  3. SODIUM CHLORIDE [Concomitant]
     Indication: PRODUCT USED FOR UNKNOWN INDICATION
     Route: 065
  4. DEXTRAN 40/DEXTROSE [Suspect]
     Indication: TENDONITIS
     Route: 042
     Dates: start: 20110830, end: 20110830
  5. AESCIN [Concomitant]
     Indication: PRODUCT USED FOR UNKNOWN INDICATION
     Route: 065

REACTIONS (5)
  - TONGUE OEDEMA [None]
  - LIP OEDEMA [None]
  - EYELID OEDEMA [None]
  - DYSPNOEA [None]
  - COUGH [None]
